FAERS Safety Report 8622086-0 (Version None)
Quarter: 2012Q3

REPORT INFORMATION
  Report Type: 
  Country: None (occurrence: None)
  Receive Date: 20120825
  Receipt Date: 20120821
  Transmission Date: 20120928
  Serious: Yes (Death, Other)
  Sender: FDA-Public Use
  Company Number: CA-TEVA-315172USA

PATIENT
  Sex: Male

DRUGS (9)
  1. AMLODIPINE [Concomitant]
     Dates: start: 20030630
  2. ABATACEPT [Suspect]
     Dosage: 125 MILLIGRAM DAILY;
     Route: 058
     Dates: start: 20080617
  3. METHOTREXATE [Suspect]
     Dates: start: 20101201, end: 20120805
  4. FOLIC ACID [Concomitant]
     Dates: start: 20100610
  5. METFORMIN HCL [Concomitant]
     Dates: start: 20030507
  6. TELMISARTAN [Concomitant]
     Dates: start: 19980101
  7. ACETYLSALICYLIC ACID SRT [Concomitant]
     Dates: start: 20030507
  8. ROSUVASTATIN [Concomitant]
     Dates: start: 20040408
  9. PREDNISONE TAB [Concomitant]
     Dates: start: 20090616

REACTIONS (1)
  - LUNG ADENOCARCINOMA METASTATIC [None]
